FAERS Safety Report 15313233 (Version 1)
Quarter: 2018Q3

REPORT INFORMATION
  Report Type: Other
  Country: FR (occurrence: FR)
  Receive Date: 20180823
  Receipt Date: 20180823
  Transmission Date: 20181010
  Serious: Yes (Death)
  Sender: FDA-Public Use
  Company Number: FR-INCYTE CORPORATION-2018IN008529

PATIENT

DRUGS (5)
  1. VIDAZA [Suspect]
     Active Substance: AZACITIDINE
     Indication: MYCOSIS FUNGOIDES
     Dosage: UNK
     Route: 042
  2. CORTANCYL [Suspect]
     Active Substance: PREDNISONE
     Indication: MYCOSIS FUNGOIDES
     Dosage: 20 MG, QD
     Route: 048
     Dates: start: 201703, end: 20180531
  3. ZELITREX [Concomitant]
     Active Substance: VALACYCLOVIR HYDROCHLORIDE
     Indication: PRODUCT USED FOR UNKNOWN INDICATION
     Dosage: UNK
     Route: 065
  4. JAKAVI [Suspect]
     Active Substance: RUXOLITINIB
     Indication: MYELOFIBROSIS
     Dosage: 1 DF, QD
     Route: 048
     Dates: start: 20171213, end: 20180531
  5. WELLVONE [Concomitant]
     Active Substance: ATOVAQUONE
     Indication: PRODUCT USED FOR UNKNOWN INDICATION
     Route: 065

REACTIONS (6)
  - Rectal haemorrhage [Fatal]
  - Colonic abscess [Fatal]
  - Shock haemorrhagic [Fatal]
  - Septic shock [Fatal]
  - Diverticulitis intestinal haemorrhagic [Fatal]
  - Colitis [Fatal]

NARRATIVE: CASE EVENT DATE: 20180523
